FAERS Safety Report 12744577 (Version 4)
Quarter: 2020Q4

REPORT INFORMATION
  Report Type: Spontaneous
  Country: US (occurrence: US)
  Receive Date: 20160914
  Receipt Date: 20201027
  Transmission Date: 20210113
  Serious: No
  Sender: FDA-Public Use
  Company Number: US-JAZZ-2016-US-009426

PATIENT
  Age: 56 Year
  Sex: Female

DRUGS (35)
  1. XYREM [Suspect]
     Active Substance: SODIUM OXYBATE
     Dosage: DOSE ADJUSTMENTS
     Route: 048
  2. XYREM [Suspect]
     Active Substance: SODIUM OXYBATE
     Dosage: 4 G, BID
     Route: 048
     Dates: start: 200903
  3. LORATADINE. [Concomitant]
     Active Substance: LORATADINE
  4. CYTOMEL [Concomitant]
     Active Substance: LIOTHYRONINE SODIUM
  5. METFORMIN HYDROCHLORIDE. [Concomitant]
     Active Substance: METFORMIN HYDROCHLORIDE
  6. XYREM [Suspect]
     Active Substance: SODIUM OXYBATE
     Indication: FIBROMYALGIA
     Dosage: 2.5 G, BID
     Route: 048
     Dates: start: 200605, end: 200608
  7. BLOCADREN [Concomitant]
     Active Substance: TIMOLOL MALEATE
  8. ENTOCORT [Concomitant]
     Active Substance: BUDESONIDE
  9. KLONOPIN [Concomitant]
     Active Substance: CLONAZEPAM
  10. REMERON [Concomitant]
     Active Substance: MIRTAZAPINE
  11. SYNTHROID [Concomitant]
     Active Substance: LEVOTHYROXINE SODIUM
  12. XYREM [Suspect]
     Active Substance: SODIUM OXYBATE
     Dosage: 2 G, BID
     Route: 048
  13. PREVACID [Concomitant]
     Active Substance: LANSOPRAZOLE
  14. PROGESTERONE. [Concomitant]
     Active Substance: PROGESTERONE
  15. METOCLOPRAMIDE HYDROCHLORIDE. [Concomitant]
     Active Substance: METOCLOPRAMIDE HYDROCHLORIDE
  16. TIMOLOL. [Concomitant]
     Active Substance: TIMOLOL
  17. VITAMIN B12 + FOLIC ACID [Concomitant]
     Active Substance: CYANOCOBALAMIN\FOLIC ACID
  18. PROCHLORPERAZINE EDISYLATE. [Concomitant]
     Active Substance: PROCHLORPERAZINE EDISYLATE
  19. ONDANSETRON HYDROCHLORIDE. [Concomitant]
     Active Substance: ONDANSETRON HYDROCHLORIDE
  20. CHOLESTYRAMINE. [Concomitant]
     Active Substance: CHOLESTYRAMINE
  21. NIZORAL [Concomitant]
     Active Substance: KETOCONAZOLE
  22. RELPAX [Concomitant]
     Active Substance: ELETRIPTAN HYDROBROMIDE
  23. ASCORBIC ACID. [Concomitant]
     Active Substance: ASCORBIC ACID
  24. BUSPIRONE HCL [Concomitant]
     Active Substance: BUSPIRONE HYDROCHLORIDE
  25. FIORICET [Concomitant]
     Active Substance: ACETAMINOPHEN\BUTALBITAL\CAFFEINE
  26. LYRICA [Concomitant]
     Active Substance: PREGABALIN
  27. ZANAFLEX [Concomitant]
     Active Substance: TIZANIDINE HYDROCHLORIDE
  28. HYDROCODONE BITARTRATE W/PARACETAMOL [Concomitant]
     Active Substance: ACETAMINOPHEN\HYDROCODONE BITARTRATE
  29. MIRAPEX [Concomitant]
     Active Substance: PRAMIPEXOLE DIHYDROCHLORIDE
  30. TRILEPTAL [Concomitant]
     Active Substance: OXCARBAZEPINE
  31. IBUPROFEN. [Concomitant]
     Active Substance: IBUPROFEN
  32. IRON [Concomitant]
     Active Substance: IRON
  33. MIRALAX [Concomitant]
     Active Substance: POLYETHYLENE GLYCOL 3350
  34. OXYCONTIN [Concomitant]
     Active Substance: OXYCODONE HYDROCHLORIDE
  35. SULFACETAMIDE SODIUM AND SULFUR [Concomitant]
     Active Substance: SULFACETAMIDE SODIUM\SULFUR

REACTIONS (6)
  - Anaemia [Unknown]
  - Weight decreased [Unknown]
  - Insomnia [Not Recovered/Not Resolved]
  - Migraine [Recovering/Resolving]
  - Pre-existing condition improved [Unknown]
  - Blood iron abnormal [Unknown]

NARRATIVE: CASE EVENT DATE: 201504
